FAERS Safety Report 8886109 (Version 1)
Quarter: 2012Q4

REPORT INFORMATION
  Report Type: 
  Country: US (occurrence: US)
  Receive Date: 20121105
  Receipt Date: 20121105
  Transmission Date: 20130627
  Serious: No
  Sender: FDA-Public Use
  Company Number: US-BAYER-2012-115367

PATIENT
  Age: 63 Year
  Sex: Male

DRUGS (5)
  1. STAXYN (FDT/ODT) [Suspect]
     Indication: ERECTILE DYSFUNCTION
     Dosage: 10 mg, ONCE
     Route: 048
     Dates: start: 20121025, end: 20121025
  2. FLOMAX [Concomitant]
     Indication: BLADDER INCONTINENCE
  3. SIMVASTATIN [Concomitant]
     Indication: HIGH CHOLESTEROL
  4. MULTIVITAMINS WITH MINERALS [MULTIVITAMINS WITH MINERALS] [Concomitant]
  5. VESICARE [Concomitant]

REACTIONS (3)
  - Flushing [Recovered/Resolved]
  - Headache [Recovered/Resolved]
  - Erythema [Recovered/Resolved]
